FAERS Safety Report 13964125 (Version 2)
Quarter: 2017Q4

REPORT INFORMATION
  Report Type: Spontaneous
  Country: US (occurrence: US)
  Receive Date: 20170913
  Receipt Date: 20171113
  Transmission Date: 20180320
  Serious: No
  Sender: FDA-Public Use
  Company Number: US-009507513-1708USA011364

PATIENT
  Age: 20 Year
  Sex: Female
  Weight: 85.4 kg

DRUGS (1)
  1. NEXPLANON [Suspect]
     Active Substance: ETONOGESTREL
     Dosage: 1 ROD EVERY 3 YEARS, LEFT ARM
     Route: 059
     Dates: start: 20140805, end: 20170814

REACTIONS (5)
  - Incorrect drug administration duration [Unknown]
  - Complication of device removal [Not Recovered/Not Resolved]
  - Device breakage [Not Recovered/Not Resolved]
  - Menstruation irregular [Unknown]
  - Expired product administered [Unknown]

NARRATIVE: CASE EVENT DATE: 20161031
